FAERS Safety Report 7893966-9 (Version None)
Quarter: 2011Q4

REPORT INFORMATION
  Report Type: 
  Country: None (occurrence: None)
  Receive Date: 20111104
  Receipt Date: 20111101
  Transmission Date: 20120403
  Serious: Yes (Other)
  Sender: FDA-Public Use
  Company Number: AU-JNJFOC-20111100425

PATIENT
  Age: 56 Year
  Sex: Female

DRUGS (2)
  1. SIMPONI [Suspect]
     Indication: PSORIATIC ARTHROPATHY
     Route: 058
     Dates: start: 20110601
  2. SIMPONI [Suspect]
     Indication: CROHN'S DISEASE
     Route: 058
     Dates: start: 20110601

REACTIONS (1)
  - COLITIS [None]
